FAERS Safety Report 17191108 (Version 1)
Quarter: 2019Q4

REPORT INFORMATION
  Report Type: Spontaneous
  Country: US (occurrence: US)
  Receive Date: 20191220
  Receipt Date: 20191220
  Transmission Date: 20200122
  Serious: Yes (Life-Threatening, Hospitalization)
  Sender: FDA-Public Use
  Company Number: None

PATIENT
  Age: 77 Year
  Sex: Male
  Weight: 107.9 kg

DRUGS (1)
  1. UDENYCA [Suspect]
     Active Substance: PEGFILGRASTIM-CBQV
     Indication: FEBRILE NEUTROPENIA
     Dosage: ?          OTHER FREQUENCY:ONE TIME DOSE;?
     Route: 058
     Dates: start: 20191210, end: 20191210

REACTIONS (4)
  - Neutrophil count decreased [None]
  - Blood pressure decreased [None]
  - Febrile neutropenia [None]
  - Hypotension [None]

NARRATIVE: CASE EVENT DATE: 20191217
